FAERS Safety Report 5929316-4 (Version None)
Quarter: 2008Q4

REPORT INFORMATION
  Report Type: 
  Country: None (occurrence: None)
  Receive Date: 20081020
  Receipt Date: 20081010
  Transmission Date: 20090506
  Serious: Yes (Other)
  Sender: FDA-Public Use
  Company Number: GXKR2008ES09734

PATIENT
  Age: 38 Year
  Sex: Male

DRUGS (9)
  1. ITRACONAZOLE [Suspect]
     Dosage: 200 MG, BID, UNKNOWN
  2. TRETINOIN [Suspect]
     Indication: CHEMOTHERAPY
     Dosage: 45 MG/M2, QD, UNKNOWN
  3. IDARUBICIN HCL [Concomitant]
  4. ACYCLOVIR [Concomitant]
  5. CO-TRIMOXAZOLE (CO-TRIMOXAZOLE) [Concomitant]
  6. LINEZOLID [Concomitant]
  7. OMEPRAZOLE [Concomitant]
  8. LORAZEPAM [Concomitant]
  9. METOCLOPRAMIDE [Concomitant]

REACTIONS (4)
  - DRUG INTERACTION [None]
  - HYPERCALCAEMIA [None]
  - RENAL FAILURE ACUTE [None]
  - RETINOIC ACID SYNDROME [None]
